FAERS Safety Report 26027939 (Version 1)
Quarter: 2025Q4

REPORT INFORMATION
  Report Type: Spontaneous
  Country: US (occurrence: None)
  Receive Date: 20251111
  Receipt Date: 20251111
  Transmission Date: 20260118
  Serious: No
  Sender: FDA-CTU
  Company Number: None

PATIENT
  Sex: Female

DRUGS (19)
  1. JAKAFI [Suspect]
     Active Substance: RUXOLITINIB
     Indication: Myelofibrosis
     Dosage: FREQUENCY : TWICE A DAY;?
     Route: 048
     Dates: start: 20220125
  2. ALPRAZOLAM [Concomitant]
     Active Substance: ALPRAZOLAM
  3. AMLODIPINE [Concomitant]
     Active Substance: AMLODIPINE BESYLATE
  4. ASPIRIN [Concomitant]
     Active Substance: ASPIRIN
  5. CALCIUM CARBONATE [Concomitant]
     Active Substance: CALCIUM CARBONATE
  6. CARVEDILOL [Concomitant]
     Active Substance: CARVEDILOL
  7. CLOPIDOGREL [Concomitant]
     Active Substance: CLOPIDOGREL BISULFATE
  8. ERGOCALCIFEROL [Concomitant]
     Active Substance: ERGOCALCIFEROL
  9. FAMOTIDINE [Concomitant]
     Active Substance: FAMOTIDINE
  10. FERROUS SULFATE [Concomitant]
     Active Substance: FERROUS SULFATE
  11. FISH OIL [Concomitant]
     Active Substance: FISH OIL
  12. LISINOPRIL [Concomitant]
     Active Substance: LISINOPRIL
  13. MAGNESIUM [Concomitant]
     Active Substance: MAGNESIUM
  14. VITAMINS [Concomitant]
     Active Substance: VITAMINS
  15. NITROSTAT [Concomitant]
     Active Substance: NITROGLYCERIN
  16. PROBIOTICS NOS [Concomitant]
     Active Substance: PROBIOTICS NOS
  17. PROLIA [Concomitant]
     Active Substance: DENOSUMAB
  18. SIMVASTATIN [Concomitant]
     Active Substance: SIMVASTATIN
  19. TYLENOL [Concomitant]
     Active Substance: ACETAMINOPHEN

REACTIONS (1)
  - Intentional product use issue [None]
